FAERS Safety Report 4508284-6 (Version None)
Quarter: 2004Q4

REPORT INFORMATION
  Report Type: 
  Country: None (occurrence: None)
  Receive Date: 20041123
  Receipt Date: 20031211
  Transmission Date: 20050328
  Serious: No
  Sender: FDA-Public Use
  Company Number: US-GLAXOSMITHKLINE-A0443389A

PATIENT
  Age: 53 Year
  Sex: Female

DRUGS (2)
  1. WELLBUTRIN [Suspect]
     Indication: ILL-DEFINED DISORDER
     Dosage: 150MG TWICE PER DAY
     Route: 048
  2. WELLBUTRIN [Suspect]
     Route: 048
     Dates: start: 20031125

REACTIONS (4)
  - DEPRESSION [None]
  - IRRITABILITY [None]
  - NERVOUSNESS [None]
  - SEXUAL DYSFUNCTION [None]
